FAERS Safety Report 6539019-3 (Version None)
Quarter: 2010Q1

REPORT INFORMATION
  Report Type: 
  Country: None (occurrence: None)
  Receive Date: 20100115
  Receipt Date: 20100114
  Transmission Date: 20100710
  Serious: Yes (Other)
  Sender: FDA-Public Use
  Company Number: CH-BAYER-201011550GPV

PATIENT
  Age: 73 Year
  Sex: Male
  Weight: 75 kg

DRUGS (3)
  1. CIPROXIN [Suspect]
     Indication: PROSTATITIS
     Dosage: TOTAL DAILY DOSE: 1000 MG  UNIT DOSE: 500 MG
     Route: 048
     Dates: start: 20091202, end: 20091222
  2. VIAGRA [Concomitant]
     Route: 048
     Dates: start: 20090929
  3. ALFUZOSIN HCL [Concomitant]
     Indication: BENIGN PROSTATIC HYPERPLASIA
     Dosage: UNIT DOSE: 10 MG
     Route: 048
     Dates: start: 20091202

REACTIONS (4)
  - ARTHRALGIA [None]
  - CHONDROPATHY [None]
  - JOINT SWELLING [None]
  - TENDONITIS [None]
